FAERS Safety Report 9649463 (Version 3)
Quarter: 2013Q4

REPORT INFORMATION
  Report Type: Report from Study
  Country: DE (occurrence: DE)
  Receive Date: 20131028
  Receipt Date: 20131127
  Transmission Date: 20140711
  Serious: Yes (Other)
  Sender: FDA-Public Use
  Company Number: DE-ABBVIE-13P-062-1160698-00

PATIENT
  Sex: Female

DRUGS (13)
  1. HUMIRA [Suspect]
     Indication: PSORIATIC ARTHROPATHY
     Route: 058
     Dates: start: 20120503, end: 20131008
  2. MTX [Concomitant]
     Indication: PRODUCT USED FOR UNKNOWN INDICATION
  3. VOLTAREN [Concomitant]
     Indication: PRODUCT USED FOR UNKNOWN INDICATION
  4. METOPROLOL [Concomitant]
     Indication: PRODUCT USED FOR UNKNOWN INDICATION
  5. VALSARTAN [Concomitant]
     Indication: PRODUCT USED FOR UNKNOWN INDICATION
  6. TARGIN [Concomitant]
     Indication: PRODUCT USED FOR UNKNOWN INDICATION
  7. L-THYROXINE [Concomitant]
     Indication: PRODUCT USED FOR UNKNOWN INDICATION
  8. DIOVAN 160 [Concomitant]
     Indication: PRODUCT USED FOR UNKNOWN INDICATION
  9. CLONAZEPAM [Concomitant]
     Indication: PRODUCT USED FOR UNKNOWN INDICATION
  10. LOCOL [Concomitant]
     Indication: PRODUCT USED FOR UNKNOWN INDICATION
  11. FORASEMIDE [Concomitant]
     Indication: PRODUCT USED FOR UNKNOWN INDICATION
  12. CALCIUM D3 [Concomitant]
     Indication: PRODUCT USED FOR UNKNOWN INDICATION
  13. TERIPARATID (FORSTEO) [Concomitant]
     Indication: PRODUCT USED FOR UNKNOWN INDICATION

REACTIONS (2)
  - Systemic lupus erythematosus [Recovering/Resolving]
  - Fatigue [Recovering/Resolving]
